FAERS Safety Report 6885407-5 (Version None)
Quarter: 2010Q3

REPORT INFORMATION
  Report Type: 
  Country: None (occurrence: None)
  Receive Date: 20100729
  Receipt Date: 20080805
  Transmission Date: 20110219
  Serious: No
  Sender: FDA-Public Use
  Company Number: US-PFIZER INC-2008052438

PATIENT
  Sex: Female
  Weight: 71.8 kg

DRUGS (7)
  1. CELEBREX [Suspect]
     Indication: PAIN IN EXTREMITY
     Route: 048
     Dates: start: 20080613, end: 20080619
  2. CELEXA [Suspect]
  3. BUSPAR [Suspect]
  4. ALL OTHER THERAPEUTIC PRODUCTS [Suspect]
  5. CAMPRAL [Concomitant]
  6. SIMVASTATIN [Concomitant]
  7. METOPROLOL TARTRATE [Concomitant]

REACTIONS (2)
  - DISORIENTATION [None]
  - DIZZINESS [None]
